FAERS Safety Report 13106729 (Version 4)
Quarter: 2017Q4

REPORT INFORMATION
  Report Type: Spontaneous
  Country: AR (occurrence: AR)
  Receive Date: 20170111
  Receipt Date: 20171027
  Transmission Date: 20180320
  Serious: Yes (Hospitalization, Other)
  Sender: FDA-Public Use
  Company Number: AR-PFIZER INC-2017008973

PATIENT
  Age: 82 Year
  Sex: Female

DRUGS (2)
  1. SUTENT [Suspect]
     Active Substance: SUNITINIB MALATE
     Dosage: UNK, CYCLIC (DAILY, SCHEME 2/1)
     Dates: start: 20161201
  2. SUTENT [Suspect]
     Active Substance: SUNITINIB MALATE
     Indication: METASTATIC RENAL CELL CARCINOMA
     Dosage: UNK, CYCLIC (DAILY, SCHEME 14 DAYS/7 DAYS OFF)
     Dates: start: 20161201, end: 20170412

REACTIONS (11)
  - Parosmia [Recovering/Resolving]
  - Gait inability [Recovering/Resolving]
  - Hypogeusia [Recovering/Resolving]
  - Laboratory test abnormal [Recovering/Resolving]
  - Renal disorder [Recovering/Resolving]
  - Blood sodium decreased [Recovering/Resolving]
  - Blood calcium decreased [Recovering/Resolving]
  - Anaemia [Recovering/Resolving]
  - Malaise [Recovering/Resolving]
  - Loss of personal independence in daily activities [Recovering/Resolving]
  - Blood pressure abnormal [Recovering/Resolving]

NARRATIVE: CASE EVENT DATE: 2016
